FAERS Safety Report 6928307-4 (Version None)
Quarter: 2010Q3

REPORT INFORMATION
  Report Type: 
  Country: None (occurrence: None)
  Receive Date: 20100817
  Receipt Date: 20100808
  Transmission Date: 20110219
  Serious: Yes (Death, Life-Threatening, Hospitalization)
  Sender: FDA-Public Use
  Company Number: DE-ROCHE-720740

PATIENT
  Sex: Male
  Weight: 70 kg

DRUGS (3)
  1. PEGINTERFERON ALFA-2A [Suspect]
     Route: 058
     Dates: start: 20091109, end: 20091209
  2. PEGINTERFERON ALFA-2A [Suspect]
     Route: 058
     Dates: start: 20091216, end: 20100716
  3. RIBAVIRIN [Suspect]
     Route: 048
     Dates: start: 20091109, end: 20100719

REACTIONS (2)
  - EMPYEMA [None]
  - SEPSIS [None]
